FAERS Safety Report 8192894-1 (Version None)
Quarter: 2012Q1

REPORT INFORMATION
  Report Type: 
  Country: None (occurrence: None)
  Receive Date: 20120308
  Receipt Date: 20120229
  Transmission Date: 20120608
  Serious: Yes (Other)
  Sender: FDA-Public Use
  Company Number: CA-JNJFOC-20120300501

PATIENT
  Sex: Female
  Weight: 80.5 kg

DRUGS (5)
  1. FOLIC ACID [Concomitant]
     Route: 065
  2. CALCIUM [Concomitant]
     Route: 065
  3. PREVACID [Concomitant]
     Route: 065
  4. METHOTREXATE [Concomitant]
     Route: 048
  5. REMICADE [Suspect]
     Indication: CROHN'S DISEASE
     Route: 042
     Dates: start: 20090101

REACTIONS (1)
  - TONSILLECTOMY [None]
